FAERS Safety Report 11117251 (Version 3)
Quarter: 2015Q2

REPORT INFORMATION
  Report Type: Spontaneous
  Country: US (occurrence: US)
  Receive Date: 20150515
  Receipt Date: 20150520
  Transmission Date: 20150821
  Serious: Yes (Other)
  Sender: FDA-Public Use
  Company Number: US-ABBVIE-07P-163-0357671-00

PATIENT
  Sex: Male

DRUGS (1)
  1. DEPAKOTE [Suspect]
     Active Substance: DIVALPROEX SODIUM
     Indication: PRODUCT USED FOR UNKNOWN INDICATION
     Route: 065

REACTIONS (12)
  - Ejaculation delayed [Unknown]
  - Physical disability [Unknown]
  - Priapism [Unknown]
  - Unevaluable event [Unknown]
  - Cardiac disorder [Unknown]
  - Azoospermia [Unknown]
  - Seizure [Unknown]
  - Diabetes mellitus [Unknown]
  - Hypertension [Unknown]
  - Mental impairment [Unknown]
  - Penile curvature [Unknown]
  - Osteoarthritis [Unknown]
